FAERS Safety Report 4982589-7 (Version None)
Quarter: 2006Q1

REPORT INFORMATION
  Report Type: 
  Country: None (occurrence: None)
  Receive Date: 20060227
  Receipt Date: 20050613
  Transmission Date: 20060701
  Serious: Yes (Hospitalization)
  Sender: FDA-Public Use
  Company Number: WAES 0506USA01946

PATIENT
  Age: 67 Year
  Sex: Female

DRUGS (8)
  1. ZOCOR [Suspect]
     Indication: HYPERLIPIDAEMIA
     Dosage: 80 MG/PO
     Route: 048
     Dates: start: 20050518, end: 20050607
  2. SPORANOX [Suspect]
     Indication: BLASTOMYCOSIS
     Dosage: 200 MG/BID
     Dates: start: 20050518, end: 20050608
  3. DIOVAN [Concomitant]
  4. FOSAMAX [Concomitant]
  5. NORVASC [Concomitant]
  6. ZANTAC [Concomitant]
  7. POTASSIUM CHLORIDE [Concomitant]
  8. TORSEMIDE [Concomitant]

REACTIONS (2)
  - DRUG INTERACTION [None]
  - RHABDOMYOLYSIS [None]
